FAERS Safety Report 21849674 (Version 2)
Quarter: 2024Q2

REPORT INFORMATION
  Report Type: Report from Study
  Country: US (occurrence: US)
  Receive Date: 20230111
  Receipt Date: 20240410
  Transmission Date: 20240716
  Serious: No
  Sender: FDA-Public Use
  Company Number: US-ABBVIE-4229636

PATIENT
  Sex: Female

DRUGS (1)
  1. SKYRIZI [Suspect]
     Active Substance: RISANKIZUMAB-RZAA
     Indication: Psoriasis
     Route: 058

REACTIONS (18)
  - Erythema [Unknown]
  - Anxiety [Unknown]
  - Depression [Unknown]
  - Neuropathy peripheral [Unknown]
  - Inflammation [Unknown]
  - Gait disturbance [Unknown]
  - Plantar fasciitis [Unknown]
  - Arthritis [Unknown]
  - Headache [Unknown]
  - Vision blurred [Unknown]
  - Spinal osteoarthritis [Unknown]
  - Upper limb fracture [Unknown]
  - Nodule [Unknown]
  - COVID-19 [Unknown]
  - Sinusitis [Unknown]
  - Respiratory tract infection [Unknown]
  - Insomnia [Unknown]
  - Osteoarthritis [Unknown]

NARRATIVE: CASE EVENT DATE: 20190101
